FAERS Safety Report 8272226 (Version 3)
Quarter: 2012Q4

REPORT INFORMATION
  Report Type: 
  Country: CA (occurrence: CA)
  Receive Date: 20111202
  Receipt Date: 20121123
  Transmission Date: 20130627
  Serious: Yes (Other)
  Sender: FDA-Public Use
  Company Number: CA-JNJFOC-20111112307

PATIENT
  Age: 65 Year
  Sex: Male

DRUGS (2)
  1. NIZORAL A-D [Suspect]
     Indication: RASH
     Route: 061
  2. NIZORAL A-D [Suspect]
     Indication: TINEA INFECTION
     Route: 061

REACTIONS (16)
  - Suicidal ideation [Unknown]
  - Hypersensitivity [Unknown]
  - Erythema [Recovered/Resolved]
  - Skin exfoliation [Recovered/Resolved]
  - Alopecia [Recovered/Resolved]
  - Skin burning sensation [Recovered/Resolved]
  - Pruritus [Recovered/Resolved]
  - Rash [Recovered/Resolved]
  - Dermatitis [Recovered/Resolved]
  - Off label use [Recovered/Resolved]
  - Inappropriate schedule of drug administration [Recovered/Resolved]
  - Sensory loss [Recovered/Resolved]
  - Dry skin [Recovered/Resolved]
  - Melanocytic naevus [Unknown]
  - Therapeutic response decreased [Recovered/Resolved]
  - Drug administered at inappropriate site [Recovered/Resolved]
